FAERS Safety Report 11344016 (Version 4)
Quarter: 2015Q3

REPORT INFORMATION
  Report Type: Spontaneous
  Country: US (occurrence: US)
  Receive Date: 20150806
  Receipt Date: 20150916
  Transmission Date: 20151125
  Serious: Yes (Death, Hospitalization, Other)
  Sender: FDA-Public Use
  Company Number: US-JNJFOC-20150802925

PATIENT
  Age: 86 Year
  Sex: Male

DRUGS (6)
  1. IMBRUVICA [Suspect]
     Active Substance: IBRUTINIB
     Indication: MANTLE CELL LYMPHOMA
     Route: 048
     Dates: start: 20140820, end: 201507
  2. ALLOPURINOL. [Concomitant]
     Active Substance: ALLOPURINOL
  3. PRAVACOL [Concomitant]
     Active Substance: PRAVASTATIN SODIUM
  4. FLECAINIDE [Concomitant]
     Active Substance: FLECAINIDE
  5. FUROSEMIDE. [Concomitant]
     Active Substance: FUROSEMIDE
  6. PROPANOLOL HYDROCHLORIDE [Concomitant]
     Active Substance: PROPRANOLOL HYDROCHLORIDE
     Dates: end: 201507

REACTIONS (11)
  - Acute kidney injury [Unknown]
  - Fall [Unknown]
  - Benign prostatic hyperplasia [Unknown]
  - Essential tremor [Unknown]
  - Subdural haematoma [Unknown]
  - Asthenia [Unknown]
  - Bradycardia [Unknown]
  - Acute respiratory failure [Fatal]
  - Pneumonia [Unknown]
  - Sepsis [Unknown]
  - Anaemia [Not Recovered/Not Resolved]

NARRATIVE: CASE EVENT DATE: 201507
